FAERS Safety Report 7001020-3 (Version None)
Quarter: 2010Q3

REPORT INFORMATION
  Report Type: 
  Country: None (occurrence: None)
  Receive Date: 20100920
  Receipt Date: 20070605
  Transmission Date: 20110219
  Serious: Yes (Other)
  Sender: FDA-Public Use
  Company Number: US-ASTRAZENECA-2006UW12341

PATIENT
  Age: 51 Year
  Sex: Male
  Weight: 127.5 kg

DRUGS (19)
  1. SEROQUEL [Suspect]
     Indication: DEPRESSION
     Route: 048
     Dates: start: 20050101, end: 20060101
  2. SEROQUEL [Suspect]
     Indication: SLEEP DISORDER
     Route: 048
     Dates: start: 20050101, end: 20060101
  3. SEROQUEL [Suspect]
     Indication: ANXIETY
     Route: 048
     Dates: start: 20050101, end: 20060101
  4. SEROQUEL [Suspect]
     Dosage: 50MG-100MG
     Route: 048
     Dates: start: 20050701
  5. SEROQUEL [Suspect]
     Dosage: 50MG-100MG
     Route: 048
     Dates: start: 20050701
  6. SEROQUEL [Suspect]
     Dosage: 50MG-100MG
     Route: 048
     Dates: start: 20050701
  7. RISPERDAL [Concomitant]
     Indication: DEPRESSION
     Dates: start: 20060101
  8. RISPERDAL [Concomitant]
     Dosage: 0.5MG TO 4.5MG, 2MG EVERY 4 HOURS AS REQUIRED
     Route: 048
     Dates: start: 20050624
  9. ZYPREXA [Concomitant]
     Indication: PAIN
     Dates: start: 20050101
  10. ZYPREXA [Concomitant]
     Indication: SLEEP DISORDER
     Dates: start: 20050101
  11. ZYPREXA [Concomitant]
     Indication: DEPRESSION
     Dates: start: 20050101
  12. ZYPREXA [Concomitant]
     Route: 048
     Dates: start: 20030822
  13. ZYPREXA [Concomitant]
     Route: 048
     Dates: start: 20030822
  14. ZYPREXA [Concomitant]
     Route: 048
     Dates: start: 20030822
  15. EFFEXOR [Concomitant]
     Indication: DEPRESSION
     Dosage: 37.5MG-300MG
     Dates: start: 19980330
  16. DILAUDID [Concomitant]
     Indication: CHEST PAIN
     Dosage: INTRAVENOUS
     Dates: start: 20021210
  17. ZOLOFT [Concomitant]
     Dosage: 50MG-150MG DAILY
     Dates: start: 20050624
  18. CELEBREX [Concomitant]
     Route: 048
     Dates: start: 20020613
  19. GLUCOPHAGE [Concomitant]
     Dosage: 500MG-1000MG
     Route: 048
     Dates: start: 20060615

REACTIONS (4)
  - DIABETES MELLITUS [None]
  - DIABETES MELLITUS INADEQUATE CONTROL [None]
  - PANCREATITIS [None]
  - TYPE 2 DIABETES MELLITUS [None]
